FAERS Safety Report 6434289-4 (Version None)
Quarter: 2009Q4

REPORT INFORMATION
  Report Type: 
  Country: None (occurrence: None)
  Receive Date: 20091110
  Receipt Date: 20091030
  Transmission Date: 20100525
  Serious: Yes (Death)
  Sender: FDA-Public Use
  Company Number: JP-WATSON-2009-09184

PATIENT
  Sex: Male

DRUGS (3)
  1. RAPAFLO [Suspect]
     Indication: BLADDER OBSTRUCTION
     Dosage: 4 MG, BID
     Route: 048
     Dates: start: 20090901, end: 20090928
  2. RAPAFLO [Suspect]
     Dosage: 4 MG, BID
     Route: 048
     Dates: start: 20090807, end: 20090820
  3. RAPAFLO [Suspect]
     Dosage: 4 MG, BID
     Route: 048
     Dates: start: 20090722

REACTIONS (2)
  - AORTIC ANEURYSM RUPTURE [None]
  - DEATH [None]
